FAERS Safety Report 4359157-3 (Version None)
Quarter: 2004Q2

REPORT INFORMATION
  Report Type: 
  Country: None (occurrence: None)
  Receive Date: 20040512
  Receipt Date: 20040427
  Transmission Date: 20050107
  Serious: Yes (Other)
  Sender: FDA-Public Use
  Company Number: USA040465974

PATIENT
  Age: 47 Year
  Sex: Male
  Weight: 59 kg

DRUGS (5)
  1. HUMULIN 70/30 [Suspect]
     Dosage: 15 U/1 DAY
     Dates: start: 19990101
  2. XANAX [Concomitant]
  3. PREVACID [Concomitant]
  4. VITAMIN B COMPLEX CAP [Concomitant]
  5. MULTI-VITAMIN [Concomitant]

REACTIONS (13)
  - ANXIETY [None]
  - BACK INJURY [None]
  - FALL [None]
  - HYPOGLYCAEMIA [None]
  - HYPOGLYCAEMIA UNAWARENESS [None]
  - LOSS OF CONSCIOUSNESS [None]
  - MEDICATION ERROR [None]
  - MUSCLE SPASMS [None]
  - NERVE INJURY [None]
  - PHARMACEUTICAL PRODUCT COMPLAINT [None]
  - RIB FRACTURE [None]
  - SHOCK [None]
  - TREMOR [None]
